FAERS Safety Report 8888496 (Version 2)
Quarter: 2017Q4

REPORT INFORMATION
  Report Type: Spontaneous
  Country: US (occurrence: US)
  Receive Date: 20121106
  Receipt Date: 20171228
  Transmission Date: 20180321
  Serious: No
  Sender: FDA-Public Use
  Company Number: US-ASTRAZENECA-2012SE29070

PATIENT
  Age: 68 Year
  Sex: Female
  Weight: 65.8 kg

DRUGS (10)
  1. ATACAND HCT [Suspect]
     Active Substance: CANDESARTAN CILEXETIL\HYDROCHLOROTHIAZIDE
     Indication: HYPERTENSION
     Dosage: CANDESARTAN HCT 32/12.5 MG TWICE DAILY
     Route: 048
     Dates: start: 2013, end: 2015
  2. HYDRALAZINE [Concomitant]
     Active Substance: HYDRALAZINE HYDROCHLORIDE
     Indication: HYPERTENSION
     Route: 048
  3. ATACAND HCT [Suspect]
     Active Substance: CANDESARTAN CILEXETIL\HYDROCHLOROTHIAZIDE
     Indication: HYPERTENSION
     Dosage: 32/12.5 MG DAILY
     Route: 048
     Dates: start: 1985
  4. CARVEDILOL. [Concomitant]
     Active Substance: CARVEDILOL
     Indication: HYPERTENSION
     Route: 048
  5. BUTALAB ACETAMIN CAFFEINE [Concomitant]
     Indication: SYSTEMIC LUPUS ERYTHEMATOSUS
     Dosage: 50.0MG AS REQUIRED
     Route: 048
  6. ATACAND [Suspect]
     Active Substance: CANDESARTAN CILEXETIL
     Route: 048
  7. ATACAND HCT [Suspect]
     Active Substance: CANDESARTAN CILEXETIL\HYDROCHLOROTHIAZIDE
     Indication: HYPERTENSION
     Dosage: CANDESARTAN HCT 32/12.5 MG TWICE DAILY
     Route: 048
     Dates: start: 20171124
  8. ATACAND HCT [Suspect]
     Active Substance: CANDESARTAN CILEXETIL\HYDROCHLOROTHIAZIDE
     Indication: HYPERTENSION
     Dosage: 32/12.5MG TWICE DAILY
     Route: 048
     Dates: end: 2012
  9. AMLODIPINE [Concomitant]
     Active Substance: AMLODIPINE BESYLATE
     Indication: HYPERTENSION
     Route: 048
  10. SPIRONOLACTONE. [Concomitant]
     Active Substance: SPIRONOLACTONE
     Indication: HYPERTENSION
     Route: 048

REACTIONS (7)
  - Therapy cessation [Unknown]
  - Drug effect decreased [Unknown]
  - Drug dose omission [Unknown]
  - Systemic lupus erythematosus [Unknown]
  - Blood pressure increased [Unknown]
  - Loss of consciousness [Recovered/Resolved]
  - Blood pressure inadequately controlled [Unknown]

NARRATIVE: CASE EVENT DATE: 2012
